FAERS Safety Report 19321557 (Version 2)
Quarter: 2021Q2

REPORT INFORMATION
  Report Type: Report from Study
  Country: ZA (occurrence: ZA)
  Receive Date: 20210527
  Receipt Date: 20210603
  Transmission Date: 20210717
  Serious: Yes (Other)
  Sender: FDA-Public Use
  Company Number: ZA-ASTRAZENECA-2021A457943

PATIENT
  Age: 24034 Day
  Sex: Female
  Weight: 69 kg

DRUGS (1)
  1. OLAPARIB. [Suspect]
     Active Substance: OLAPARIB
     Indication: OVARIAN CANCER
     Route: 048
     Dates: start: 20210422, end: 20210520

REACTIONS (3)
  - Drug ineffective [Unknown]
  - Liver function test abnormal [Unknown]
  - Disease progression [Unknown]

NARRATIVE: CASE EVENT DATE: 20210520
